FAERS Safety Report 4665083-2 (Version None)
Quarter: 2005Q2

REPORT INFORMATION
  Report Type: 
  Country: None (occurrence: None)
  Receive Date: 20050517
  Receipt Date: 20050428
  Transmission Date: 20051028
  Serious: Yes (Other)
  Sender: FDA-Public Use
  Company Number: GBS040915641

PATIENT
  Age: 60 Year
  Sex: Female
  Weight: 83 kg

DRUGS (4)
  1. EVISTA [Suspect]
     Indication: OSTEOPOROSIS PROPHYLAXIS
     Dosage: 60 MG DAY
     Dates: start: 20040601, end: 20040824
  2. BECONASE (BECLOMETASONE DIPROPIONATE) [Concomitant]
  3. BRICANYL [Concomitant]
  4. PULMICORT [Concomitant]

REACTIONS (1)
  - POSTMENOPAUSAL HAEMORRHAGE [None]
